FAERS Safety Report 7328519-4 (Version None)
Quarter: 2011Q1

REPORT INFORMATION
  Report Type: 
  Country: None (occurrence: None)
  Receive Date: 20110218
  Receipt Date: 20110208
  Transmission Date: 20110831
  Serious: Yes (Other)
  Sender: FDA-Public Use
  Company Number: 1000018807

PATIENT
  Age: 66 Year
  Sex: Male
  Weight: 72.3 kg

DRUGS (6)
  1. INSULIN GLARGINE (INSULIN GLARGINE) (INSULIN GLARGINE) [Concomitant]
  2. CITALOPRAM HYDROBROMIDE [Suspect]
     Indication: DEPRESSION
     Dosage: 20 MG (20 MG, 1 IN 1 D), ORAL
     Route: 048
     Dates: start: 20100924, end: 20110117
  3. LOPERAMIDE (LOPERAMIDE) (LOPERAMIDE) [Concomitant]
  4. ZOPICLONE (ZOPICLONE) (ZOPICLONE) [Concomitant]
  5. METFORMIN HCL [Concomitant]
  6. NOVORAPID (INSULIN ASPART) (INSULIN ASPART) [Concomitant]

REACTIONS (2)
  - SOMNAMBULISM [None]
  - MEMORY IMPAIRMENT [None]
